FAERS Safety Report 19417104 (Version 2)
Quarter: 2021Q3

REPORT INFORMATION
  Report Type: Spontaneous
  Country: US (occurrence: US)
  Receive Date: 20210614
  Receipt Date: 20210819
  Transmission Date: 20211014
  Serious: No
  Sender: FDA-Public Use
  Company Number: US-ASTRAZENECA-2021A470499

PATIENT
  Age: 3582 Week
  Sex: Female
  Weight: 112.9 kg

DRUGS (1)
  1. FASENRA [Suspect]
     Active Substance: BENRALIZUMAB
     Indication: ASTHMA
     Route: 058
     Dates: start: 20210515

REACTIONS (4)
  - Device use issue [Unknown]
  - Injection site injury [Unknown]
  - Incorrect dose administered by device [Recovered/Resolved with Sequelae]
  - Device delivery system issue [Unknown]

NARRATIVE: CASE EVENT DATE: 20210515
